FAERS Safety Report 5176914-4 (Version None)
Quarter: 2006Q4

REPORT INFORMATION
  Report Type: 
  Country: None (occurrence: None)
  Receive Date: 20061207
  Receipt Date: 20061207
  Transmission Date: 20070319
  Serious: Yes (Death)
  Sender: FDA-Public Use
  Company Number: 2006S1008176

PATIENT
  Age: 4 Year
  Sex: Male
  Weight: 28.5766 kg

DRUGS (1)
  1. FENTANYL TRANSDERMAL SYSTEM [Suspect]
     Dosage: TDER
     Route: 062

REACTIONS (2)
  - NARCOTIC INTOXICATION [None]
  - VICTIM OF ABUSE [None]
